FAERS Safety Report 23980941 (Version 2)
Quarter: 2024Q3

REPORT INFORMATION
  Report Type: Spontaneous
  Country: CN (occurrence: CN)
  Receive Date: 20240617
  Receipt Date: 20240715
  Transmission Date: 20241017
  Serious: Yes (Other)
  Sender: HETERO
  Company Number: CN-HETERO-HET2024CN01812

PATIENT
  Sex: Male
  Weight: 28 kg

DRUGS (3)
  1. OSELTAMIVIR [Suspect]
     Active Substance: OSELTAMIVIR
     Indication: Bronchitis
     Dosage: 10 MILLILITER, TID
     Route: 048
     Dates: start: 20240526, end: 20240528
  2. CEFTIZOXIME SODIUM [Suspect]
     Active Substance: CEFTIZOXIME SODIUM
     Indication: Bronchitis
     Dosage: 1.4 GRAM, BID
     Route: 041
     Dates: start: 20240525, end: 20240528
  3. SODIUM CHLORIDE [Concomitant]
     Active Substance: SODIUM CHLORIDE
     Indication: Drug therapy
     Dosage: 100 MILLILITER, BID
     Route: 041
     Dates: start: 20240525, end: 20240528

REACTIONS (1)
  - White blood cell count decreased [Recovered/Resolved]
